FAERS Safety Report 7407480 (Version 3)
Quarter: 2012Q4

REPORT INFORMATION
  Report Type: 
  Country: JP (occurrence: US)
  Receive Date: 20100602
  Receipt Date: 20120919
  Transmission Date: 20130627
  Serious: Yes (Other)
  Sender: FDA-Public Use
  Company Number: US-JNJFOC-20090904651

PATIENT
  Sex: Female
  Weight: 86.18 kg

DRUGS (2)
  1. LEVAQUIN [Suspect]
     Indication: BACTERIAL INFECTION
     Route: 048
  2. CIPROFLOXACIN [Suspect]
     Indication: PRODUCT USED FOR UNKNOWN INDICATION
     Route: 048

REACTIONS (5)
  - Tendon injury [Unknown]
  - Knee arthroplasty [Unknown]
  - Carpal tunnel syndrome [Unknown]
  - Rotator cuff repair [Recovering/Resolving]
  - Rash [Unknown]
